FAERS Safety Report 7437667-X (Version None)
Quarter: 2011Q2

REPORT INFORMATION
  Report Type: 
  Country: None (occurrence: None)
  Receive Date: 20110426
  Receipt Date: 20110415
  Transmission Date: 20111010
  Serious: Yes (Other)
  Sender: FDA-Public Use
  Company Number: US-ROCHE-769130

PATIENT
  Sex: Female
  Weight: 61.2 kg

DRUGS (3)
  1. BONIVA [Suspect]
     Indication: OSTEOPOROSIS PROPHYLAXIS
     Route: 048
     Dates: start: 20090101
  2. CRESTOR [Concomitant]
  3. CALCIUM [Concomitant]

REACTIONS (2)
  - INFECTION [None]
  - ENDODONTIC PROCEDURE [None]
